FAERS Safety Report 7798419 (Version 2)
Quarter: 2012Q4

REPORT INFORMATION
  Report Type: 
  Country: US (occurrence: US)
  Receive Date: 20110203
  Receipt Date: 20121206
  Transmission Date: 20130627
  Serious: Yes (Hospitalization, Other)
  Sender: FDA-Public Use
  Company Number: US-ASTRAZENECA-2011SE04504

PATIENT
  Age: 56 Year
  Sex: Female
  Weight: 87.1 kg

DRUGS (9)
  1. SEROQUEL [Suspect]
     Indication: SCHIZOPHRENIA
     Route: 048
     Dates: start: 2005, end: 20100903
  2. SEROQUEL [Suspect]
     Indication: SCHIZOPHRENIA
     Route: 048
     Dates: start: 20100903, end: 20110122
  3. SEROQUEL [Suspect]
     Indication: SCHIZOPHRENIA
     Route: 048
     Dates: start: 20110123
  4. SEROQUEL [Suspect]
     Indication: SCHIZOPHRENIA
     Route: 048
     Dates: start: 201101, end: 2012
  5. SEROQUEL [Suspect]
     Indication: SCHIZOPHRENIA
     Dosage: GENERIC
     Route: 048
     Dates: start: 2012
  6. LISINOPRIL [Suspect]
     Indication: BLOOD PRESSURE ABNORMAL
     Route: 048
     Dates: start: 2011
  7. UNKNOWN EXTENDED RELEASE PRODUCT [Suspect]
     Route: 065
     Dates: start: 201009
  8. LORAZEPAM [Concomitant]
     Indication: SLEEP DISORDER
     Dates: start: 2005
  9. LORAZEPAM [Concomitant]
     Indication: ANXIETY
     Dates: start: 2005

REACTIONS (19)
  - Mental disorder [Unknown]
  - Tachyphrenia [Unknown]
  - Paranoia [Unknown]
  - Suicidal ideation [Not Recovered/Not Resolved]
  - Insomnia [Unknown]
  - Visual impairment [Unknown]
  - Adverse drug reaction [Unknown]
  - Skin burning sensation [Unknown]
  - Trismus [Unknown]
  - Masked facies [Unknown]
  - Hypoaesthesia [Unknown]
  - Paraesthesia [Unknown]
  - Disturbance in attention [Unknown]
  - Sleep disorder [Unknown]
  - Anxiety [Unknown]
  - Hypertension [Unknown]
  - Drug dose omission [Unknown]
  - Insomnia [None]
  - Product substitution issue [None]
